FAERS Safety Report 20512357 (Version 2)
Quarter: 2022Q4

REPORT INFORMATION
  Report Type: Spontaneous
  Country: US (occurrence: US)
  Receive Date: 20220224
  Receipt Date: 20221129
  Transmission Date: 20230112
  Serious: Yes (Other)
  Sender: FDA-Public Use
  Company Number: US-PFIZER INC-202200309369

PATIENT
  Age: 68 Year
  Sex: Female

DRUGS (2)
  1. XELJANZ XR [Suspect]
     Active Substance: TOFACITINIB CITRATE
     Dosage: UNK
     Dates: start: 20220201, end: 20220216
  2. XELJANZ XR [Suspect]
     Active Substance: TOFACITINIB CITRATE
     Dosage: UNK
     Dates: start: 20220219

REACTIONS (6)
  - Knee operation [Unknown]
  - Product dose omission in error [Unknown]
  - Weight increased [Unknown]
  - Vomiting [Unknown]
  - Memory impairment [Unknown]
  - Illness [Unknown]

NARRATIVE: CASE EVENT DATE: 20220101
